FAERS Safety Report 4533580-6 (Version None)
Quarter: 2004Q4

REPORT INFORMATION
  Report Type: 
  Country: None (occurrence: None)
  Receive Date: 20041221
  Receipt Date: 20041209
  Transmission Date: 20050328
  Serious: Yes (Other)
  Sender: FDA-Public Use
  Company Number: PHBS2004CA16876

PATIENT
  Sex: Female

DRUGS (1)
  1. FAMVIR [Suspect]
     Indication: HERPES SIMPLEX
     Dosage: 250 MG, QD
     Route: 048
     Dates: start: 20041101

REACTIONS (5)
  - DIZZINESS [None]
  - HAEMORRHAGE [None]
  - TREMOR [None]
  - VISION BLURRED [None]
  - VISUAL FIELD DEFECT [None]
